FAERS Safety Report 5287630-2 (Version None)
Quarter: 2007Q1

REPORT INFORMATION
  Report Type: 
  Country: None (occurrence: None)
  Receive Date: 20070103
  Receipt Date: 20060918
  Transmission Date: 20070707
  Serious: Yes (Other)
  Sender: FDA-Public Use
  Company Number: 147666USA

PATIENT
  Age: 4 Year
  Sex: Male

DRUGS (5)
  1. LAMOTRIGINE TABLETS (LAMOTRIGINE) [Suspect]
     Indication: CONVULSION
     Dosage: 4 TABLETS IN AM AND 5 TABLETS IN PM (25 MG),ORAL
     Route: 048
     Dates: start: 20060601
  2. LAMOTRIGINE TABLETS (LAMOTRIGINE) [Suspect]
  3. ZONISAMIDE [Concomitant]
  4. ETHOSUXIMIDE [Concomitant]
  5. CLONAZEPAM [Concomitant]

REACTIONS (2)
  - CONVULSION [None]
  - DRUG INEFFECTIVE [None]
